FAERS Safety Report 12356317 (Version 2)
Quarter: 2016Q3

REPORT INFORMATION
  Report Type: Spontaneous
  Country: US (occurrence: US)
  Receive Date: 20160511
  Receipt Date: 20160711
  Transmission Date: 20161109
  Serious: Yes (Other)
  Sender: FDA-Public Use
  Company Number: US-BAYER-2016-090744

PATIENT
  Age: 21 Year
  Sex: Female
  Weight: 53.61 kg

DRUGS (2)
  1. MIRENA [Suspect]
     Active Substance: LEVONORGESTREL
     Indication: CONTRACEPTION
     Dosage: 20 MCG/24HR, CONT
     Route: 015
     Dates: start: 20160407, end: 20160429
  2. MIRENA [Suspect]
     Active Substance: LEVONORGESTREL
     Indication: CONTRACEPTION
     Dosage: 20 MCG/24HR, CONT
     Route: 015
     Dates: start: 20160429, end: 201605

REACTIONS (6)
  - Dysmenorrhoea [None]
  - Device dislocation [None]
  - Genital haemorrhage [None]
  - Device dislocation [None]
  - Abdominal discomfort [None]
  - Uterine cervical pain [None]

NARRATIVE: CASE EVENT DATE: 20160429
